FAERS Safety Report 22184498 (Version 3)
Quarter: 2023Q2

REPORT INFORMATION
  Report Type: Spontaneous
  Country: RU (occurrence: RU)
  Receive Date: 20230407
  Receipt Date: 20230426
  Transmission Date: 20230722
  Serious: Yes (Other)
  Sender: FDA-Public Use
  Company Number: RU-SA-2023SA106689

PATIENT
  Age: 51 Year
  Sex: Female
  Weight: 60 kg

DRUGS (3)
  1. SARCLISA [Suspect]
     Active Substance: ISATUXIMAB-IRFC
     Dosage: 600 MG
     Route: 042
     Dates: start: 202108
  2. POMALIDOMIDE [Concomitant]
     Active Substance: POMALIDOMIDE
     Dosage: 4 MG ONCE A DAY 21 OF A 28 DAY CYCLE
     Route: 048
     Dates: start: 202108
  3. DEXAMETHASONE [Concomitant]
     Active Substance: DEXAMETHASONE
     Dosage: 20 MG D1 AND D2 OF EACH 28 DAY CYCLE

REACTIONS (3)
  - Deafness [Recovered/Resolved]
  - Pneumonia viral [Recovered/Resolved]
  - Bacterial infection [Recovered/Resolved]

NARRATIVE: CASE EVENT DATE: 20220101
